FAERS Safety Report 19034228 (Version 1)
Quarter: 2021Q1

REPORT INFORMATION
  Report Type: Spontaneous
  Country: CA (occurrence: CA)
  Receive Date: 20210320
  Receipt Date: 20210320
  Transmission Date: 20210420
  Serious: Yes (Hospitalization, Other)
  Sender: FDA-Public Use
  Company Number: CA-LUPIN PHARMACEUTICALS INC.-2021-03539

PATIENT
  Age: 84 Year
  Sex: Female

DRUGS (2)
  1. METHYLPREDNISOLONE. [Suspect]
     Active Substance: METHYLPREDNISOLONE
     Indication: DRUG THERAPY
     Dosage: 1 GRAM, QD
     Route: 042
  2. PREDNISONE. [Suspect]
     Active Substance: PREDNISONE
     Indication: DRUG THERAPY
     Dosage: 50 MILLIGRAM, QD
     Route: 048

REACTIONS (2)
  - Endophthalmitis [Recovering/Resolving]
  - Nocardiosis [Recovering/Resolving]
